FAERS Safety Report 17191457 (Version 9)
Quarter: 2021Q4

REPORT INFORMATION
  Report Type: Spontaneous
  Country: US (occurrence: US)
  Receive Date: 20191223
  Receipt Date: 20211230
  Transmission Date: 20220303
  Serious: Yes (Hospitalization)
  Sender: FDA-Public Use
  Company Number: US-PFIZER INC-2019548880

PATIENT
  Age: 57 Year
  Sex: Female
  Weight: 86.18 kg

DRUGS (4)
  1. RELPAX [Suspect]
     Active Substance: ELETRIPTAN HYDROBROMIDE
     Indication: Migraine
     Dosage: 40 MG, AS NEEDED (40MG 1 TABLET BY MOUTH TWICE A DAY AS NEEDED MAY REPEAT IN 2 HOURS AS NEEDED)
     Route: 048
  2. RELPAX [Suspect]
     Active Substance: ELETRIPTAN HYDROBROMIDE
     Indication: Headache
     Dosage: 40 MG, AS NEEDED (1 TABLET BY MOUTH DAILY AS NEEDED/REPEAT IN 2 HOURS IF NECESSARY/MAX 80 MG/24 HRS)
     Route: 048
  3. RELPAX [Suspect]
     Active Substance: ELETRIPTAN HYDROBROMIDE
     Dosage: 40 MG, AS NEEDED (1 TAB AS NEEDED; MAY REPEAT DOSE AFTER 2 HRS; MAX 80MG/DAY)
  4. EMGALITY [Concomitant]
     Active Substance: GALCANEZUMAB-GNLM
     Dosage: 120 MG, MONTHLY
     Dates: start: 20191015

REACTIONS (5)
  - Product dispensing error [Unknown]
  - Prescribed overdose [Unknown]
  - Weight increased [Recovered/Resolved]
  - Drug ineffective [Not Recovered/Not Resolved]
  - Fatigue [Unknown]

NARRATIVE: CASE EVENT DATE: 20190101
